FAERS Safety Report 25926325 (Version 2)
Quarter: 2025Q4

REPORT INFORMATION
  Report Type: Report from Study
  Country: BR (occurrence: BR)
  Receive Date: 20251015
  Receipt Date: 20251104
  Transmission Date: 20260117
  Serious: Yes (Other)
  Sender: NOVO NORDISK
  Company Number: BR-NOVOPROD-1484689

PATIENT
  Age: 48 Year
  Sex: Female
  Weight: 94 kg

DRUGS (7)
  1. METFORMIN HYDROCHLORIDE [Concomitant]
     Active Substance: METFORMIN HYDROCHLORIDE
     Indication: Type 2 diabetes mellitus
     Dosage: 1 G, BID (02 TABLETS AFTER LUNCH AND 02 TABLETS AFTER DINNER)
  2. PIOTAZ [Concomitant]
     Indication: Type 2 diabetes mellitus
     Dosage: 15 MG, QD IN THE MORNING
  3. HOLMES H [Concomitant]
     Indication: Hypertension
     Dosage: 52.5 MG, QD (40MG + 12.5MG) - IN THE MORNING
  4. FLUOXETINE [Concomitant]
     Active Substance: FLUOXETINE HYDROCHLORIDE
     Indication: Anxiety
     Dosage: 40 MG, QD (02 TABLETS OF 20MG EVERY MORNING)
  5. CLONAZEPAM [Concomitant]
     Active Substance: CLONAZEPAM
     Indication: Anxiety
     Dosage: 2 MG, PRN ONLY WHEN THERE ARE CRISES
  6. WEGOVY [Suspect]
     Active Substance: SEMAGLUTIDE
     Indication: Weight control
     Dosage: 1.7 MG, QW
     Dates: start: 20250715
  7. WEGOVY [Suspect]
     Active Substance: SEMAGLUTIDE
     Indication: Type 2 diabetes mellitus

REACTIONS (7)
  - Device failure [Unknown]
  - Incorrect dose administered by device [Not Recovered/Not Resolved]
  - Diabetes mellitus inadequate control [Not Recovered/Not Resolved]
  - Injection site reaction [Recovered/Resolved]
  - Off label use [Not Recovered/Not Resolved]
  - Drug effect less than expected [Not Recovered/Not Resolved]
  - Product communication issue [Unknown]

NARRATIVE: CASE EVENT DATE: 20250101
